FAERS Safety Report 13573174 (Version 2)
Quarter: 2017Q3

REPORT INFORMATION
  Report Type: Spontaneous
  Country: US (occurrence: US)
  Receive Date: 20170523
  Receipt Date: 20170706
  Transmission Date: 20171127
  Serious: No
  Sender: FDA-Public Use
  Company Number: US-ASTRAZENECA-2017SE53665

PATIENT
  Age: 21319 Day
  Sex: Female

DRUGS (1)
  1. LYNPARZA [Suspect]
     Active Substance: OLAPARIB
     Indication: NEOPLASM MALIGNANT
     Route: 048

REACTIONS (6)
  - Dry skin [Unknown]
  - Drug dose omission [Not Recovered/Not Resolved]
  - Erythema [Unknown]
  - Circumstance or information capable of leading to medication error [Unknown]
  - Weight decreased [Unknown]
  - Adverse event [Not Recovered/Not Resolved]
